FAERS Safety Report 5272786-8 (Version None)
Quarter: 2007Q1

REPORT INFORMATION
  Report Type: 
  Country: None (occurrence: None)
  Receive Date: 20070322
  Receipt Date: 20070315
  Transmission Date: 20070707
  Serious: Yes (Other)
  Sender: FDA-Public Use
  Company Number: NO-GLAXOSMITHKLINE-B0463028A

PATIENT
  Age: 33 Year
  Sex: Female

DRUGS (1)
  1. ZANTAC [Suspect]
     Indication: PROPHYLAXIS
     Route: 065
     Dates: start: 20031010, end: 20031024

REACTIONS (1)
  - BENIGN INTRACRANIAL HYPERTENSION [None]
